FAERS Safety Report 7970002-7 (Version None)
Quarter: 2011Q4

REPORT INFORMATION
  Report Type: 
  Country: None (occurrence: None)
  Receive Date: 20111212
  Receipt Date: 20111130
  Transmission Date: 20120403
  Serious: Yes (Hospitalization)
  Sender: FDA-Public Use
  Company Number: BR-US-EMD SERONO, INC.-7090407

PATIENT
  Sex: Male

DRUGS (4)
  1. REBIF [Suspect]
     Indication: SECONDARY PROGRESSIVE MULTIPLE SCLEROSIS
     Dates: start: 20020429
  2. ENALAPRIL MALEATE [Concomitant]
  3. FLUOXETINE [Concomitant]
  4. MANTIDAN [Concomitant]

REACTIONS (19)
  - ASTHENIA [None]
  - BALANCE DISORDER [None]
  - INJECTION SITE NODULE [None]
  - URINARY INCONTINENCE [None]
  - MALAISE [None]
  - INJECTION SITE FIBROSIS [None]
  - GAIT DISTURBANCE [None]
  - CHOKING [None]
  - INJECTION SITE HAEMATOMA [None]
  - FALL [None]
  - WEIGHT DECREASED [None]
  - URINARY RETENTION [None]
  - INJECTION SITE ERYTHEMA [None]
  - OEDEMA PERIPHERAL [None]
  - BLOOD PRESSURE INCREASED [None]
  - FEELING ABNORMAL [None]
  - DEPRESSION [None]
  - DYSPHONIA [None]
  - MUSCULAR WEAKNESS [None]
